FAERS Safety Report 8332615-2 (Version None)
Quarter: 2012Q2

REPORT INFORMATION
  Report Type: 
  Country: None (occurrence: None)
  Receive Date: 20120503
  Receipt Date: 20120418
  Transmission Date: 20120825
  Serious: Yes (Hospitalization, Other)
  Sender: FDA-Public Use
  Company Number: CN-JNJFOC-20110710190

PATIENT
  Sex: Male

DRUGS (1)
  1. SPORANOX [Suspect]
     Indication: ONYCHOMYCOSIS
     Route: 048
     Dates: start: 20110712, end: 20110718

REACTIONS (6)
  - WEIGHT INCREASED [None]
  - PLATELET COUNT DECREASED [None]
  - DIARRHOEA [None]
  - GENERALISED OEDEMA [None]
  - BLOOD CHOLESTEROL DECREASED [None]
  - LOW DENSITY LIPOPROTEIN DECREASED [None]
